FAERS Safety Report 16511327 (Version 2)
Quarter: 2020Q4

REPORT INFORMATION
  Report Type: Spontaneous
  Country: GT (occurrence: GT)
  Receive Date: 20190702
  Receipt Date: 20201212
  Transmission Date: 20210113
  Serious: Yes (Death, Hospitalization)
  Sender: FDA-Public Use
  Company Number: PHHY2019GT150872

PATIENT
  Age: 16 Year
  Sex: Female

DRUGS (1)
  1. GLIVEC [Suspect]
     Active Substance: IMATINIB MESYLATE
     Indication: CHRONIC MYELOID LEUKAEMIA
     Dosage: 400 MG, UNK
     Route: 065

REACTIONS (4)
  - Death [Fatal]
  - Pain in extremity [Unknown]
  - Peripheral swelling [Unknown]
  - Infection [Unknown]

NARRATIVE: CASE EVENT DATE: 20190626
